FAERS Safety Report 9740348 (Version 3)
Quarter: 2013Q4

REPORT INFORMATION
  Report Type: Report from Study
  Country: US (occurrence: US)
  Receive Date: 20131209
  Receipt Date: 20131219
  Transmission Date: 20140711
  Serious: Yes (Other)
  Sender: FDA-Public Use
  Company Number: US-PURDUE-USA-2013-0107929

PATIENT
  Sex: Male

DRUGS (1)
  1. OXYCONTIN (NDA 22-272) [Suspect]
     Indication: OSTEOARTHRITIS
     Dosage: 60 MG, TID
     Route: 048
     Dates: start: 2009

REACTIONS (10)
  - Urinary bladder haemorrhage [Recovered/Resolved]
  - Suicidal ideation [Unknown]
  - Drug withdrawal syndrome [Unknown]
  - Back injury [Unknown]
  - Joint injury [Unknown]
  - Wrong technique in drug usage process [Unknown]
  - Inadequate analgesia [Unknown]
  - Drug tolerance [Unknown]
  - Emotional distress [Unknown]
  - Pain [Unknown]
